FAERS Safety Report 9127750 (Version 1)
Quarter: 2013Q1

REPORT INFORMATION
  Report Type: Spontaneous
  Country: AU (occurrence: AU)
  Receive Date: 20130228
  Receipt Date: 20130228
  Transmission Date: 20140127
  Serious: Yes (Hospitalization)
  Sender: FDA-Public Use
  Company Number: AU-SANOFI-AVENTIS-2013SA015658

PATIENT
  Age: 99 Year
  Sex: Female
  Weight: 40 kg

DRUGS (8)
  1. CLOPIDOGREL BISULFATE [Suspect]
     Indication: PRODUCT USED FOR UNKNOWN INDICATION
     Route: 065
  2. METOPROLOL TARTRATE [Suspect]
     Indication: PRODUCT USED FOR UNKNOWN INDICATION
     Route: 065
  3. TEMAZEPAM [Suspect]
     Indication: PRODUCT USED FOR UNKNOWN INDICATION
     Dates: end: 20120418
  4. ALENDRONATE SODIUM [Concomitant]
  5. CALCIUM [Concomitant]
  6. FRUSEMIDE [Concomitant]
  7. RANITIDINE [Concomitant]
  8. SPIRONOLACTONE [Concomitant]

REACTIONS (4)
  - Femur fracture [Not Recovered/Not Resolved]
  - Laceration [Not Recovered/Not Resolved]
  - Contusion [Not Recovered/Not Resolved]
  - Fall [Unknown]
